FAERS Safety Report 7366982-3 (Version None)
Quarter: 2011Q1

REPORT INFORMATION
  Report Type: 
  Country: None (occurrence: None)
  Receive Date: 20110322
  Receipt Date: 20110318
  Transmission Date: 20110831
  Serious: No
  Sender: FDA-Public Use
  Company Number: US-PFIZER INC-2009276347

PATIENT
  Sex: Male
  Weight: 88.435 kg

DRUGS (1)
  1. CAVERJECT [Suspect]
     Indication: DIABETES MELLITUS
     Dosage: UNK
     Dates: start: 20100801

REACTIONS (2)
  - PENILE PAIN [None]
  - PRODUCT STERILITY LACKING [None]
